APPROVED DRUG PRODUCT: BUMETANIDE
Active Ingredient: BUMETANIDE
Strength: 1MG
Dosage Form/Route: TABLET;ORAL
Application: A209916 | Product #002 | TE Code: AB
Applicant: UPSHER SMITH LABORATORIES LLC
Approved: Jan 23, 2018 | RLD: No | RS: No | Type: RX